FAERS Safety Report 5345420-6 (Version None)
Quarter: 2007Q2

REPORT INFORMATION
  Report Type: 
  Country: None (occurrence: None)
  Receive Date: 20070605
  Receipt Date: 20070529
  Transmission Date: 20071010
  Serious: Yes (Disabling, Other)
  Sender: FDA-Public Use
  Company Number: GB-RB-006513-07

PATIENT
  Age: 55 Year
  Sex: Male

DRUGS (5)
  1. SUBUTEX [Suspect]
     Route: 065
  2. SUBUTEX [Suspect]
     Route: 065
  3. PEGASYS [Concomitant]
     Indication: DRUG USE FOR UNKNOWN INDICATION
     Dosage: DOSAGE UNKNOWN
     Route: 065
  4. PENICILLIN [Concomitant]
     Indication: DRUG USE FOR UNKNOWN INDICATION
     Dosage: DOSAGE UNKNOWN
     Route: 065
  5. COPEGUS [Concomitant]
     Indication: DRUG USE FOR UNKNOWN INDICATION
     Dosage: DOSAGE UNKNOWN
     Route: 065

REACTIONS (5)
  - ALOPECIA [None]
  - ECZEMA [None]
  - IMMOBILE [None]
  - SKIN DISORDER [None]
  - WEIGHT DECREASED [None]
